FAERS Safety Report 9466146 (Version 1)
Quarter: 2013Q3

REPORT INFORMATION
  Report Type: Spontaneous
  Country: US (occurrence: US)
  Receive Date: 20130820
  Receipt Date: 20130820
  Transmission Date: 20140515
  Serious: Yes (Hospitalization)
  Sender: FDA-Public Use
  Company Number: US-GILEAD-2013-0081563

PATIENT
  Sex: Female

DRUGS (5)
  1. LETAIRIS [Suspect]
     Indication: PULMONARY HYPERTENSION
     Dosage: 10 MG, QD
     Route: 048
     Dates: start: 20100429
  2. PROAIR                             /00139502/ [Concomitant]
  3. ADVAIR [Concomitant]
  4. LASIX                              /00032601/ [Concomitant]
  5. WARFARIN [Concomitant]

REACTIONS (1)
  - Pneumonia [Recovered/Resolved]
